FAERS Safety Report 14986922 (Version 3)
Quarter: 2018Q2

REPORT INFORMATION
  Report Type: Spontaneous
  Country: FR (occurrence: FR)
  Receive Date: 20180608
  Receipt Date: 20180622
  Transmission Date: 20180711
  Serious: Yes (Death, Other)
  Sender: FDA-Public Use
  Company Number: FR-TAKEDA-2018TUS019058

PATIENT
  Age: 46 Year
  Sex: Female

DRUGS (1)
  1. BRINTELLIX [Suspect]
     Active Substance: VORTIOXETINE HYDROBROMIDE
     Indication: ANTIDEPRESSANT THERAPY
     Dosage: 10 MG, UNK
     Route: 065
     Dates: start: 201803

REACTIONS (3)
  - Homicide [Unknown]
  - Completed suicide [Fatal]
  - Refusal of treatment by patient [Unknown]

NARRATIVE: CASE EVENT DATE: 201803
